FAERS Safety Report 6959234-4 (Version None)
Quarter: 2010Q3

REPORT INFORMATION
  Report Type: 
  Country: None (occurrence: None)
  Receive Date: 20100831
  Receipt Date: 20100823
  Transmission Date: 20110219
  Serious: Yes (Other)
  Sender: FDA-Public Use
  Company Number: US-PFIZER INC-2010106437

PATIENT
  Sex: Female

DRUGS (1)
  1. GEODON [Suspect]
     Indication: SLEEP DISORDER
     Dosage: 160 MG, 1X/DAY, AT BEDTIME

REACTIONS (2)
  - DISTURBANCE IN ATTENTION [None]
  - MENTAL IMPAIRMENT [None]
